FAERS Safety Report 8832414 (Version 2)
Quarter: 2013Q1

REPORT INFORMATION
  Report Type: Spontaneous
  Country: US (occurrence: None)
  Receive Date: 20121005
  Receipt Date: 20130222
  Transmission Date: 20140127
  Serious: Yes (Hospitalization)
  Sender: FDA-Public Use
  Company Number: 2012-4476

PATIENT
  Age: 13 Year
  Sex: Male

DRUGS (11)
  1. INCRELEX [Suspect]
     Indication: PRIMARY INSULIN LIKE GROWTH FACTOR-1 DEFICIENCY
     Dosage: 308 UG/KG (154 UG/KG, 2 IN 1 D), SUBCUTANEOUS
     Route: 058
     Dates: start: 20110818
  2. TYLENOL [Concomitant]
  3. ADVIL [Concomitant]
  4. MIRALAX [Concomitant]
  5. ASMANEX [Concomitant]
  6. MAXAIR [Concomitant]
  7. ZYRTEC (CETIRIZINE) [Concomitant]
  8. PATADAY (OLAPATADINE) [Concomitant]
  9. FOLVITE (FOLIC ACID) [Concomitant]
  10. VITAMINS [Concomitant]
  11. NASONEX 50 (MOMETASONE FUROATE) [Concomitant]

REACTIONS (3)
  - Hypoxia [None]
  - Treatment noncompliance [None]
  - Pyrexia [None]
